FAERS Safety Report 9155309 (Version 2)
Quarter: 2013Q4

REPORT INFORMATION
  Report Type: Spontaneous
  Country: JP (occurrence: None)
  Receive Date: 20130206
  Receipt Date: 20131211
  Transmission Date: 20140711
  Serious: Yes (Hospitalization, Other)
  Sender: FDA-Public Use
  Company Number: ADR-2013-00172

PATIENT
  Age: 33 Year
  Sex: Female

DRUGS (5)
  1. GABALON [Suspect]
     Indication: DYSTONIA
  2. RISPERDAL [Concomitant]
  3. RIVOTRIL [Concomitant]
  4. ZYPREXA [Concomitant]
  5. DEPAS [Concomitant]

REACTIONS (4)
  - Schizophrenia [None]
  - Pain [None]
  - Neurosis [None]
  - Insomnia [None]
